FAERS Safety Report 15961923 (Version 3)
Quarter: 2020Q4

REPORT INFORMATION
  Report Type: Report from Study
  Country: FR (occurrence: FR)
  Receive Date: 20190214
  Receipt Date: 20201203
  Transmission Date: 20210113
  Serious: Yes (Hospitalization)
  Sender: FDA-Public Use
  Company Number: FR-JNJFOC-20190110108

PATIENT
  Age: 20 Year
  Sex: Female

DRUGS (4)
  1. SIMPONI [Suspect]
     Active Substance: GOLIMUMAB
     Route: 058
     Dates: start: 20181231, end: 20190211
  2. PREDNISOLONE. [Concomitant]
     Active Substance: PREDNISOLONE
     Route: 048
     Dates: start: 20180102
  3. SIMPONI [Suspect]
     Active Substance: GOLIMUMAB
     Indication: COLITIS ULCERATIVE
     Route: 058
     Dates: start: 20181212
  4. PREDNISOLONE. [Concomitant]
     Active Substance: PREDNISOLONE
     Indication: COLITIS ULCERATIVE
     Route: 048
     Dates: start: 20181224

REACTIONS (2)
  - Anaemia [Not Recovered/Not Resolved]
  - Colitis ulcerative [Not Recovered/Not Resolved]

NARRATIVE: CASE EVENT DATE: 20190211
